FAERS Safety Report 24611555 (Version 2)
Quarter: 2025Q1

REPORT INFORMATION
  Report Type: Spontaneous
  Country: US (occurrence: US)
  Receive Date: 20241113
  Receipt Date: 20250102
  Transmission Date: 20250409
  Serious: Yes (Death, Other)
  Sender: SANOFI AVENTIS
  Company Number: US-SANOFI-02301104

PATIENT
  Age: 75 Year
  Sex: Male

DRUGS (4)
  1. DUPIXENT [Suspect]
     Active Substance: DUPILUMAB
     Indication: Dermatitis atopic
     Route: 058
     Dates: start: 20241013, end: 20241013
  2. FLUOCINONIDE [Concomitant]
     Active Substance: FLUOCINONIDE
     Indication: Dermatitis atopic
     Dosage: 0.25 %, QD
     Route: 061
  3. AMMONIUM LACTATE [Concomitant]
     Active Substance: AMMONIUM LACTATE
     Indication: Dermatitis atopic
     Dosage: 12 %, BID
     Route: 061
  4. HYDROXYZINE [Concomitant]
     Active Substance: HYDROXYZINE HYDROCHLORIDE
     Indication: Dermatitis atopic

REACTIONS (3)
  - Death [Fatal]
  - Fatigue [Unknown]
  - Malaise [Unknown]

NARRATIVE: CASE EVENT DATE: 20241001
